FAERS Safety Report 5123306-X (Version None)
Quarter: 2006Q4

REPORT INFORMATION
  Report Type: 
  Country: None (occurrence: None)
  Receive Date: 20061009
  Receipt Date: 20060807
  Transmission Date: 20070319
  Serious: Yes (Death, Other)
  Sender: FDA-Public Use
  Company Number: US-BRISTOL-MYERS SQUIBB COMPANY-13466826

PATIENT
  Age: 72 Year
  Sex: Male

DRUGS (9)
  1. CISPLATIN [Suspect]
     Indication: GASTRIC CANCER
     Route: 041
     Dates: start: 20060721, end: 20060721
  2. TS-1 [Suspect]
     Indication: GASTRIC CANCER
     Route: 048
     Dates: start: 20060721, end: 20060729
  3. PRILOSEC [Concomitant]
     Indication: GASTROOESOPHAGEAL REFLUX DISEASE
     Route: 048
     Dates: start: 20050304, end: 20060729
  4. LACTULOSE [Concomitant]
     Indication: CONSTIPATION
     Route: 048
     Dates: start: 20060729
  5. AUGMENTIN [Concomitant]
     Indication: RESPIRATORY TRACT INFECTION
     Route: 048
  6. HYDROCODONE BITARTRATE [Concomitant]
     Indication: PAIN
     Route: 048
     Dates: end: 20060729
  7. AMBIEN [Concomitant]
     Indication: INSOMNIA
     Route: 048
     Dates: end: 20060729
  8. TPN [Concomitant]
     Indication: MEDICAL DIET
     Route: 042
     Dates: start: 20060621
  9. INSULIN [Concomitant]
     Indication: HYPERGLYCAEMIA
     Route: 042
     Dates: start: 20060621

REACTIONS (3)
  - DIABETIC KETOACIDOSIS [None]
  - RENAL FAILURE ACUTE [None]
  - SEPSIS [None]
